FAERS Safety Report 5738229-2 (Version None)
Quarter: 2008Q2

REPORT INFORMATION
  Report Type: 
  Country: None (occurrence: None)
  Receive Date: 20080514
  Receipt Date: 20080508
  Transmission Date: 20081010
  Serious: Yes (Hospitalization)
  Sender: FDA-Public Use
  Company Number: GB-BOEHRINGER INGELHEIM GMBH, GERMANY-2008-UK-01156UK

PATIENT
  Age: 61 Year
  Sex: Female

DRUGS (15)
  1. SPIRIVA [Suspect]
     Indication: ASTHMA
     Route: 055
     Dates: start: 20080418, end: 20080418
  2. SPIRIVA [Suspect]
     Indication: CHRONIC OBSTRUCTIVE PULMONARY DISEASE
  3. AMINOPHYLLINE [Concomitant]
     Indication: ASTHMA
     Route: 042
     Dates: start: 20080417
  4. AMINOPHYLLINE [Concomitant]
     Indication: CHRONIC OBSTRUCTIVE PULMONARY DISEASE
     Route: 042
  5. AMITRIPTYLINE HCL [Concomitant]
  6. AMLODIPINE [Concomitant]
  7. ATORVASTATIN [Concomitant]
  8. LANSOPRAZOLE [Concomitant]
  9. LORAZEPAM [Concomitant]
  10. PREDNISOLONE [Concomitant]
     Indication: ASTHMA
     Route: 048
     Dates: start: 20080417
  11. PREDNISOLONE [Concomitant]
     Indication: CHRONIC OBSTRUCTIVE PULMONARY DISEASE
     Route: 048
  12. ALBUTEROL [Concomitant]
     Indication: ASTHMA
     Route: 055
  13. ALBUTEROL [Concomitant]
     Indication: CHRONIC OBSTRUCTIVE PULMONARY DISEASE
     Route: 055
  14. SERETIDE [Concomitant]
     Indication: ASTHMA
     Dosage: 2 DF
     Route: 055
  15. SERETIDE [Concomitant]
     Indication: CHRONIC OBSTRUCTIVE PULMONARY DISEASE
     Dosage: 2 DF
     Route: 055

REACTIONS (4)
  - BRONCHOSPASM [None]
  - DYSPNOEA [None]
  - TACHYCARDIA [None]
  - WHEEZING [None]
